FAERS Safety Report 8531204 (Version 2)
Quarter: 2012Q4

REPORT INFORMATION
  Report Type: 
  Country: US (occurrence: US)
  Receive Date: 20120426
  Receipt Date: 20120830
  Transmission Date: 20130627
  Serious: Yes (Hospitalization)
  Sender: FDA-Public Use
  Company Number: US-BAYER-2012-038671

PATIENT
  Age: 17 Year
  Sex: Female
  Weight: 102 kg

DRUGS (13)
  1. YASMIN [Suspect]
     Indication: CONTRACEPTION
     Dosage: UNK
     Dates: start: 2007, end: 2008
  2. YASMIN [Suspect]
     Indication: MENSTRUAL CYCLE MANAGEMENT
  3. YAZ [Suspect]
     Indication: CONTRACEPTION
     Dosage: UNK
     Dates: start: 2008, end: 2010
  4. YAZ [Suspect]
     Indication: MENSTRUAL CYCLE MANAGEMENT
  5. SYNTHROID [Concomitant]
     Indication: AUTOIMMUNE THYROIDITIS
     Dosage: UNK
     Dates: start: 2004
  6. AMOXICILLIN [Concomitant]
     Indication: PHARYNGITIS STREPTOCOCCAL
     Dosage: UNK UNK, TID
     Route: 048
  7. ALBUTEROL [Concomitant]
     Dosage: 90 mcg
  8. NAPROXEN [Concomitant]
     Dosage: 500 mg, BID, PRN
     Route: 048
     Dates: start: 20071128
  9. DICYCLOMINE [Concomitant]
     Dosage: 20 mg, 1 time now
     Route: 048
  10. IBUPROFEN [Concomitant]
     Dosage: UNK UNK, QD
     Route: 048
     Dates: start: 20080111
  11. PREVACID [Concomitant]
     Dosage: 30 mg, UNK
     Dates: start: 20071128
  12. SINGULAIR [Concomitant]
     Dosage: 10 mg, UNK
     Dates: start: 20071128
  13. LORTAB [Concomitant]
     Dosage: 5-500
     Dates: start: 20080111, end: 20090504

REACTIONS (10)
  - Gallbladder disorder [None]
  - Abdominal pain [None]
  - Injury [None]
  - Cholelithiasis [None]
  - General physical health deterioration [None]
  - General physical health deterioration [None]
  - Emotional distress [None]
  - Anxiety [None]
  - Pain [None]
  - Anhedonia [None]
